FAERS Safety Report 15482361 (Version 1)
Quarter: 2018Q4

REPORT INFORMATION
  Report Type: Spontaneous
  Country: US (occurrence: US)
  Receive Date: 20181003
  Receipt Date: 20181003
  Transmission Date: 20190205
  Serious: Yes (Life-Threatening, Hospitalization, Other)
  Sender: FDA-Public Use
  Company Number: None

PATIENT
  Age: 17 Year
  Sex: Female
  Weight: 63 kg

DRUGS (7)
  1. BIRTH CONTROL PILL [Concomitant]
     Active Substance: UNSPECIFIED INGREDIENT
  2. HUMALOG [Concomitant]
     Active Substance: INSULIN LISPRO
  3. PROZAC [Concomitant]
     Active Substance: FLUOXETINE HYDROCHLORIDE
  4. SULFAMETHOXAZOLE 800MG-TRIMETHOPRIM 160 GENERIC FOR BACTRIM DS; SEPTRA DS [Suspect]
     Active Substance: SULFAMETHOXAZOLE\TRIMETHOPRIM
     Indication: FOLLICULITIS
     Dosage: ?          QUANTITY:1 DF DOSAGE FORM;?
     Route: 048
     Dates: start: 20180823, end: 20180830
  5. ONE TOUCH VERUO GLUCOSE MONITOR [Concomitant]
  6. MELATONIN [Concomitant]
     Active Substance: MELATONIN
  7. LANTUS [Concomitant]
     Active Substance: INSULIN GLARGINE

REACTIONS (7)
  - Skin graft [None]
  - Debridement [None]
  - Toxic epidermal necrolysis [None]
  - Stevens-Johnson syndrome [None]
  - Second degree chemical burn of skin [None]
  - Pain [None]
  - Impaired healing [None]

NARRATIVE: CASE EVENT DATE: 20180830
